FAERS Safety Report 15013333 (Version 12)
Quarter: 2020Q1

REPORT INFORMATION
  Report Type: Report from Study
  Country: US (occurrence: US)
  Receive Date: 20180614
  Receipt Date: 20200317
  Transmission Date: 20200409
  Serious: Yes (Hospitalization, Disabling)
  Sender: FDA-Public Use
  Company Number: US-ACTELION-A-NJ2018-169721

PATIENT
  Age: 4 Month
  Sex: Male
  Weight: 12.25 kg

DRUGS (40)
  1. REMODULIN [Suspect]
     Active Substance: TREPROSTINIL
     Indication: PRODUCT USED FOR UNKNOWN INDICATION
     Dosage: 50 MG/KG, PER MIN
     Route: 058
     Dates: start: 20171102
  2. CHLOROTHIAZIDE. [Concomitant]
     Active Substance: CHLOROTHIAZIDE
     Dosage: 175 MG, BID
     Dates: start: 20170921
  3. DIGOXIN. [Concomitant]
     Active Substance: DIGOXIN
     Dosage: 40 MG, BID
  4. DOCUSATE SODIUM. [Concomitant]
     Active Substance: DOCUSATE SODIUM
  5. MORPHINE [Concomitant]
     Active Substance: MORPHINE
     Dosage: 2 MG/ML, Q4HRS
  6. FAMOTIDINE. [Concomitant]
     Active Substance: FAMOTIDINE
     Dosage: 1.6 ML, BID
  7. SILDENAFIL. [Concomitant]
     Active Substance: SILDENAFIL
     Dosage: 20 MG, TID
     Route: 048
     Dates: start: 20171018
  8. CLOPIDOGREL [Concomitant]
     Active Substance: CLOPIDOGREL BISULFATE
     Dosage: 1.5 MG, QD
     Dates: start: 20180205
  9. METRONIDAZOLE. [Concomitant]
     Active Substance: METRONIDAZOLE
     Dosage: 2.44 ML, TID
  10. SPIRONOLACTONE. [Concomitant]
     Active Substance: SPIRONOLACTONE
     Dosage: 20 MG, BID
  11. ACETAMINOPHEN. [Concomitant]
     Active Substance: ACETAMINOPHEN
  12. COUGH SYRUP DEXTROMETHORPHAN [Concomitant]
     Active Substance: DEXTROMETHORPHAN HYDROBROMIDE
     Dosage: UNK
  13. TREPROSTINIL. [Concomitant]
     Active Substance: TREPROSTINIL
     Dosage: 50 NG/KG, PER MIN
     Route: 042
     Dates: start: 20171102
  14. DIGOXIN. [Concomitant]
     Active Substance: DIGOXIN
     Dosage: 40 MCG, BID
  15. OXYGEN. [Concomitant]
     Active Substance: OXYGEN
     Dosage: 1.5 L
  16. POTASSIUM CHLORIDE. [Concomitant]
     Active Substance: POTASSIUM CHLORIDE
     Indication: CONSTIPATION
     Dosage: 13 ML, PRN
  17. POTASSIUM CHLORIDE. [Concomitant]
     Active Substance: POTASSIUM CHLORIDE
     Dosage: 13.3 MEQ, TID
  18. POTASSIUM CHLORIDE. [Concomitant]
     Active Substance: POTASSIUM CHLORIDE
     Dosage: 20 MEQ, BID
  19. OMEPRAZOLE. [Concomitant]
     Active Substance: OMEPRAZOLE
     Dosage: 4.34 ML, QD 30 BEFORE MEALS
  20. SODIUM CHLORIDE. [Concomitant]
     Active Substance: SODIUM CHLORIDE
     Dosage: 3 ML, Q4HRS AS NEEDED
     Route: 045
  21. FUROSEMIDE. [Concomitant]
     Active Substance: FUROSEMIDE
     Dosage: 15 MG, TID
     Dates: start: 20170921
  22. ONDANSETRON [Concomitant]
     Active Substance: ONDANSETRON
     Indication: NAUSEA
     Dosage: 1.3 ML, PRN
  23. ONDANSETRON [Concomitant]
     Active Substance: ONDANSETRON
     Indication: VOMITING
  24. ALBUTEROL. [Concomitant]
     Active Substance: ALBUTEROL
  25. KETOPROFEN. [Concomitant]
     Active Substance: KETOPROFEN
     Dosage: 0.2-0.5 ML DAILY AS NEEDED
     Route: 061
  26. ASPIRIN. [Concomitant]
     Active Substance: ASPIRIN
     Dosage: 20.25 MG, QD
     Dates: start: 20170928
  27. NYSTATIN. [Concomitant]
     Active Substance: NYSTATIN
  28. CETIRIZINE [Concomitant]
     Active Substance: CETIRIZINE HYDROCHLORIDE
  29. METOCLOPRAMIDE. [Concomitant]
     Active Substance: METOCLOPRAMIDE
     Dosage: 1.8 ML, QID
  30. MELATONIN [Concomitant]
     Active Substance: MELATONIN
     Dosage: 1 MG/ML, QPM
     Route: 048
  31. TRACLEER [Suspect]
     Active Substance: BOSENTAN
     Indication: PULMONARY HYPERTENSION
     Dosage: 16 MG (1/2 TAB OF 32 MG TAB), BID VIA GASTRIC TUBE
     Route: 048
     Dates: start: 20171024
  32. TRACLEER [Suspect]
     Active Substance: BOSENTAN
     Dosage: 5 MG, BID
     Route: 048
  33. SPIRONOLACTONE. [Concomitant]
     Active Substance: SPIRONOLACTONE
     Dosage: 17.5 MG, BID
     Dates: start: 20171002
  34. PEDIASURE [Concomitant]
     Active Substance: VITAMINS
  35. POLY-VI-FLOR WITH IRON [Concomitant]
     Dosage: 1 ML, QD
  36. MUPIROCIN. [Concomitant]
     Active Substance: MUPIROCIN
     Dosage: 2 %, TID
  37. REMODULIN [Suspect]
     Active Substance: TREPROSTINIL
     Dosage: 38-54NG/KG/MIN
     Route: 058
  38. GABAPENTIN. [Concomitant]
     Active Substance: GABAPENTIN
     Dosage: 250 MG/5ML
  39. CALCIUM CARBONATE. [Concomitant]
     Active Substance: CALCIUM CARBONATE
  40. IBUPROFEN. [Concomitant]
     Active Substance: IBUPROFEN

REACTIONS (30)
  - Flushing [Not Recovered/Not Resolved]
  - Clubbing [Unknown]
  - Tricuspid valve incompetence [Unknown]
  - Complication associated with device [Recovered/Resolved]
  - Hypoxia [Recovered/Resolved]
  - Venous angioplasty [Unknown]
  - Catheterisation cardiac [Not Recovered/Not Resolved]
  - Viral upper respiratory tract infection [Recovered/Resolved]
  - Blood chloride decreased [Unknown]
  - Infection [Recovered/Resolved]
  - Vascular device infection [Recovered/Resolved]
  - White blood cell count increased [Unknown]
  - Unevaluable event [Unknown]
  - Erythema [Not Recovered/Not Resolved]
  - Serratia infection [Recovered/Resolved]
  - Viral infection [Unknown]
  - Oxygen consumption increased [Recovered/Resolved]
  - Food intolerance [Unknown]
  - Respiratory acidosis [Recovering/Resolving]
  - Pyrexia [Recovered/Resolved]
  - Pulmonary arterial hypertension [Recovering/Resolving]
  - Bacteraemia [Recovered/Resolved]
  - Bloody discharge [Recovered/Resolved]
  - Weight decreased [Unknown]
  - Atrial septal defect [Unknown]
  - Cyanosis [Unknown]
  - Blood potassium decreased [Unknown]
  - Gastrointestinal tube insertion [Recovered/Resolved]
  - Haematochezia [Unknown]
  - Pulmonary vein stenosis [Unknown]

NARRATIVE: CASE EVENT DATE: 20171024
